FAERS Safety Report 9701979 (Version 1)
Quarter: 2013Q4

REPORT INFORMATION
  Report Type: Spontaneous
  Country: DE (occurrence: None)
  Receive Date: 20131120
  Receipt Date: 20131120
  Transmission Date: 20140711
  Serious: Yes (Other)
  Sender: FDA-Public Use
  Company Number: DE-MACLEODS PHARMA-000167

PATIENT
  Age: 70 Year
  Sex: Female

DRUGS (1)
  1. AMLODIPINE [Suspect]
     Indication: HYPERTENSIVE CRISIS

REACTIONS (17)
  - Dystonia [None]
  - Depression [None]
  - Decreased appetite [None]
  - Anxiety [None]
  - Neck pain [None]
  - Dyspnoea [None]
  - Dysarthria [None]
  - Dysphagia [None]
  - Movement disorder [None]
  - Torticollis [None]
  - Spasmodic dysphonia [None]
  - Dysphagia [None]
  - Hypotonia [None]
  - Dysphonia [None]
  - Bruxism [None]
  - Blepharospasm [None]
  - Sleep disorder [None]
